FAERS Safety Report 18997310 (Version 1)
Quarter: 2021Q1

REPORT INFORMATION
  Report Type: Spontaneous
  Country: GB (occurrence: GB)
  Receive Date: 20210311
  Receipt Date: 20210311
  Transmission Date: 20210420
  Serious: Yes (Other)
  Sender: FDA-Public Use
  Company Number: GB-MYLANLABS-2021M1013101

PATIENT
  Age: 26 Year
  Sex: Female
  Weight: 72 kg

DRUGS (5)
  1. EZINELLE 1.5 MG TABLET [Suspect]
     Active Substance: LEVONORGESTREL
     Indication: ILL-DEFINED DISORDER
     Dosage: 1.5
     Route: 048
     Dates: start: 20210225, end: 20210225
  2. BECLOMETASONE DIPROPIONATE [Concomitant]
     Active Substance: BECLOMETHASONE DIPROPIONATE
     Indication: ILL-DEFINED DISORDER
     Dosage: UNK
  3. EZINELLE 1.5 MG TABLET [Suspect]
     Active Substance: LEVONORGESTREL
     Indication: CONTRACEPTION
  4. CO?CYPRINDIOL [Concomitant]
     Active Substance: CYPROTERONE ACETATE\ETHINYL ESTRADIOL
     Indication: ILL-DEFINED DISORDER
     Dosage: UNK
  5. LEVOTHYROXINE SODIUM. [Concomitant]
     Active Substance: LEVOTHYROXINE SODIUM
     Indication: ILL-DEFINED DISORDER
     Dosage: UNK

REACTIONS (1)
  - Candida infection [Recovering/Resolving]

NARRATIVE: CASE EVENT DATE: 20210227
